FAERS Safety Report 18585366 (Version 1)
Quarter: 2020Q4

REPORT INFORMATION
  Report Type: Spontaneous
  Country: US (occurrence: US)
  Receive Date: 20201204
  Receipt Date: 20201204
  Transmission Date: 20210114
  Serious: No
  Sender: FDA-Public Use
  Company Number: None

PATIENT
  Age: 59 Year
  Sex: Female

DRUGS (1)
  1. OTREXUP [Suspect]
     Active Substance: METHOTREXATE
     Indication: SARCOIDOSIS
     Route: 058
     Dates: start: 202008

REACTIONS (2)
  - SARS-CoV-2 antibody test positive [None]
  - Therapy interrupted [None]
